FAERS Safety Report 11847526 (Version 1)
Quarter: 2015Q4

REPORT INFORMATION
  Report Type: Spontaneous
  Country: JP (occurrence: JP)
  Receive Date: 20151217
  Receipt Date: 20151217
  Transmission Date: 20160305
  Serious: Yes (Death, Other)
  Sender: FDA-Public Use
  Company Number: PHJP1900JP001403

PATIENT
  Age: 55 Year
  Sex: Male

DRUGS (8)
  1. VOLTAREN [Suspect]
     Active Substance: DICLOFENAC SODIUM
     Indication: PYREXIA
     Dosage: 25 MG, UNK
     Route: 065
     Dates: start: 19831108
  2. FUROSEMIDE. [Concomitant]
     Active Substance: FUROSEMIDE
     Indication: CARDIAC FAILURE
     Dosage: 20?160
     Route: 065
     Dates: end: 19831102
  3. FUROSEMIDE. [Concomitant]
     Active Substance: FUROSEMIDE
     Dosage: UNK
     Route: 065
     Dates: start: 19831108, end: 19831115
  4. STAPHCILLIN [Concomitant]
     Active Substance: METHICILLIN SODIUM ANHYDROUS
     Indication: ENDOCARDITIS
     Route: 065
     Dates: start: 19831028, end: 19831112
  5. DOPAMIN [Concomitant]
     Active Substance: DOPAMINE HYDROCHLORIDE
     Indication: CARDIAC FAILURE
     Dosage: UNK
     Route: 048
     Dates: start: 19831028, end: 19831103
  6. DOPAMIN [Concomitant]
     Active Substance: DOPAMINE HYDROCHLORIDE
     Route: 048
     Dates: start: 19831107, end: 19831204
  7. VASOLATOR [Concomitant]
     Indication: CARDIAC FAILURE
     Route: 065
     Dates: start: 19831110, end: 19831126
  8. DIGOXIN. [Concomitant]
     Active Substance: DIGOXIN
     Indication: CARDIAC FAILURE
     Dosage: 0.25 MG, UNK
     Route: 048
     Dates: start: 19831024

REACTIONS (18)
  - Renal failure [Fatal]
  - Acute kidney injury [Recovering/Resolving]
  - Sinus rhythm [Unknown]
  - Haemorrhage [Unknown]
  - Ventricular tachycardia [Unknown]
  - Pyrexia [Unknown]
  - Renal tubular necrosis [Unknown]
  - Cardiac failure [Not Recovered/Not Resolved]
  - Aortic valve incompetence [Unknown]
  - Pulmonary oedema [Unknown]
  - Blood urea increased [Unknown]
  - Renal impairment [Unknown]
  - Disseminated intravascular coagulation [Fatal]
  - Cardiac arrest [Recovering/Resolving]
  - Anuria [Unknown]
  - Blood creatinine increased [Unknown]
  - Blood pressure decreased [Unknown]
  - Shock [Recovering/Resolving]
